FAERS Safety Report 16930989 (Version 2)
Quarter: 2019Q4

REPORT INFORMATION
  Report Type: Spontaneous
  Country: US (occurrence: US)
  Receive Date: 20191017
  Receipt Date: 20191110
  Transmission Date: 20200122
  Serious: Yes (Other)
  Sender: FDA-Public Use
  Company Number: US-ACTELION-A-CH2019-196898

PATIENT
  Sex: Male

DRUGS (6)
  1. ADCIRCA [Concomitant]
     Active Substance: TADALAFIL
  2. TRACLEER [Suspect]
     Active Substance: BOSENTAN
     Indication: PULMONARY ARTERIAL HYPERTENSION
     Dosage: 3 DF, TID
     Route: 048
     Dates: start: 2003, end: 2003
  3. TYVASO [Concomitant]
     Active Substance: TREPROSTINIL
  4. FLOLAN [Concomitant]
     Active Substance: EPOPROSTENOL SODIUM
     Dosage: UNK
     Route: 042
     Dates: start: 1996, end: 2007
  5. OPSUMIT [Suspect]
     Active Substance: MACITENTAN
     Indication: PULMONARY ARTERIAL HYPERTENSION
     Dosage: UNK
     Route: 048
  6. ORENITRAM [Suspect]
     Active Substance: TREPROSTINIL
     Indication: PULMONARY ARTERIAL HYPERTENSION
     Dosage: UNK
     Route: 065
     Dates: end: 2018

REACTIONS (6)
  - Hepatic enzyme increased [Recovered/Resolved]
  - Flushing [Not Recovered/Not Resolved]
  - Abdominal pain upper [Recovered/Resolved]
  - Migraine [Not Recovered/Not Resolved]
  - Gastrointestinal disorder [Not Recovered/Not Resolved]
  - Therapy non-responder [Recovered/Resolved]
